FAERS Safety Report 22183216 (Version 1)
Quarter: 2023Q2

REPORT INFORMATION
  Report Type: Spontaneous
  Country: US (occurrence: US)
  Receive Date: 20230406
  Receipt Date: 20230406
  Transmission Date: 20230722
  Serious: No
  Sender: FDA-Public Use
  Company Number: US-Evolus, Inc.-2022EV000246

PATIENT
  Sex: Female

DRUGS (1)
  1. JEUVEAU [Suspect]
     Active Substance: PRABOTULINUMTOXINA-XVFS
     Indication: Skin wrinkling
     Dosage: 12 UNITS IN THE GLABELLAR COMPLEX, 10 UNITS IN THE FOREHEAD CORRUGATOR AND 6 UNITS LATERAL CANTHAL L
     Dates: start: 20220621, end: 20220621

REACTIONS (2)
  - Injection site pain [Recovered/Resolved]
  - Injection site inflammation [Recovering/Resolving]
